FAERS Safety Report 7757862-X (Version None)
Quarter: 2011Q3

REPORT INFORMATION
  Report Type: 
  Country: None (occurrence: None)
  Receive Date: 20110918
  Receipt Date: 20110906
  Transmission Date: 20111222
  Serious: Yes (Death)
  Sender: FDA-Public Use
  Company Number: US-BRISTOL-MYERS SQUIBB COMPANY-16062457

PATIENT

DRUGS (4)
  1. CARMUSTINE [Suspect]
     Dosage: 1 DF = 450-600 MG/SQ.M
  2. ETOPOSIDE [Suspect]
     Dosage: 1DF = 1200-2000 MG/SQ.M
  3. CYCLOPHOSPHAMIDE [Suspect]
     Dosage: 1 DF = 4500-7200MG/SQ.M
     Route: 042
  4. ACYCLOVIR [Suspect]
     Route: 042

REACTIONS (1)
  - DEATH [None]
